FAERS Safety Report 21951845 (Version 3)
Quarter: 2023Q2

REPORT INFORMATION
  Report Type: Spontaneous
  Country: JP (occurrence: JP)
  Receive Date: 20230203
  Receipt Date: 20230411
  Transmission Date: 20230722
  Serious: Yes (Other)
  Sender: FDA-Public Use
  Company Number: JP-shionogiph-202301050_OXJ_P_1

PATIENT
  Age: 6 Decade
  Sex: Male

DRUGS (19)
  1. OXYCODONE [Suspect]
     Active Substance: OXYCODONE
     Indication: Cancer pain
     Dosage: 230 MILLIGRAM, DAILY
     Route: 050
  2. OXYCODONE [Suspect]
     Active Substance: OXYCODONE
     Dosage: 288 MILLIGRAM, DAILY
     Route: 050
  3. MORPHINE [Suspect]
     Active Substance: MORPHINE
     Indication: Cancer pain
     Dosage: 2 MILLIGRAM, DAILY
     Route: 050
  4. MORPHINE [Suspect]
     Active Substance: MORPHINE
     Dosage: 1.6 MILLIGRAM, DAILY
     Route: 050
  5. MORPHINE [Suspect]
     Active Substance: MORPHINE
     Dosage: 0.8 MILLIGRAM, DAILY
     Route: 050
  6. AMINO ACIDS\DEXTROSE\ELECTROLYTES NOS\MINERALS\VITAMINS [Concomitant]
     Active Substance: AMINO ACIDS\DEXTROSE\ELECTROLYTES NOS\MINERALS\VITAMINS
     Indication: Product used for unknown indication
     Dosage: 2000 MILLILITER, DAILY
     Route: 050
  7. GASTER [Concomitant]
     Active Substance: FAMOTIDINE
     Indication: Product used for unknown indication
     Dosage: 20 MILLIGRAM, DAILY
     Route: 050
  8. BUPIVACAINE HYDROCHLORIDE [Concomitant]
     Active Substance: BUPIVACAINE HYDROCHLORIDE
     Indication: Cancer pain
     Dosage: 6 MILLIGRAM, DAILY
     Route: 050
  9. BUPIVACAINE HYDROCHLORIDE [Concomitant]
     Active Substance: BUPIVACAINE HYDROCHLORIDE
     Dosage: 4.8 MILLIGRAM, DAILY
     Route: 050
  10. BUPIVACAINE HYDROCHLORIDE [Concomitant]
     Active Substance: BUPIVACAINE HYDROCHLORIDE
     Dosage: 2.4 MILLIGRAM, DAILY
     Route: 050
  11. FENTANYL [Concomitant]
     Active Substance: FENTANYL
     Indication: Product used for unknown indication
     Dosage: 5 MILLIGRAM, DAILY
     Route: 062
  12. FENTANYL [Concomitant]
     Active Substance: FENTANYL
     Dosage: 6 MILLIGRAM, DAILY
     Route: 062
  13. FENTANYL [Concomitant]
     Active Substance: FENTANYL
     Dosage: 4 MILLIGRAM, DAILY
     Route: 062
  14. RISPERIDONE [Concomitant]
     Active Substance: RISPERIDONE
     Indication: Product used for unknown indication
     Dosage: 0.5 MILLIGRAM, DAILY
     Route: 048
  15. ZYPREXA [Concomitant]
     Active Substance: OLANZAPINE
     Indication: Product used for unknown indication
     Dosage: 5 MILLIGRAM, DAILY
     Route: 048
  16. ACETAMINOPHEN [Concomitant]
     Active Substance: ACETAMINOPHEN
     Indication: Pain
     Dosage: UNK
     Route: 065
  17. HALOPERIDOL [Concomitant]
     Active Substance: HALOPERIDOL
     Indication: Product used for unknown indication
     Dosage: 5 MILLIGRAM, DAILY
     Route: 065
  18. CALONAL [Concomitant]
     Active Substance: ACETAMINOPHEN
     Indication: Product used for unknown indication
     Dosage: 400 MILLIGRAM, DAILY
     Route: 065
  19. DIAZEPAM [Concomitant]
     Active Substance: DIAZEPAM
     Indication: Product used for unknown indication
     Dosage: 6 MILLIGRAM, DAILY
     Route: 065

REACTIONS (10)
  - Cheyne-Stokes respiration [Unknown]
  - Apnoea [Unknown]
  - Delirium [Unknown]
  - Depressed level of consciousness [Unknown]
  - Somnolence [Unknown]
  - Insomnia [Unknown]
  - Pain [Unknown]
  - Dyspnoea [Unknown]
  - Restlessness [Unknown]
  - Emotional distress [Unknown]
